FAERS Safety Report 4776615-8 (Version None)
Quarter: 2005Q3

REPORT INFORMATION
  Report Type: 
  Country: None (occurrence: None)
  Receive Date: 20050921
  Receipt Date: 20050908
  Transmission Date: 20060218
  Serious: Yes (Other)
  Sender: FDA-Public Use
  Company Number: HQWYE330409SEP05

PATIENT
  Sex: Female

DRUGS (2)
  1. EFFEXOR [Suspect]
     Dosage: 75 MG 1X PER 1 DAY   TRIED TO STOP TAKING
     Dates: start: 20050101
  2. EFFEXOR [Suspect]
     Dosage: 75 MG 1X PER 1 DAY   TRIED TO STOP TAKING
     Dates: start: 20050601

REACTIONS (16)
  - ABNORMAL DREAMS [None]
  - CONSTIPATION [None]
  - DEPRESSION [None]
  - DRUG WITHDRAWAL SYNDROME [None]
  - GINGIVAL PAIN [None]
  - HYPERACUSIS [None]
  - IMPAIRED HEALING [None]
  - INSOMNIA [None]
  - NAUSEA [None]
  - NIGHT SWEATS [None]
  - PALPITATIONS [None]
  - PHARYNGOLARYNGEAL PAIN [None]
  - PHOTOPHOBIA [None]
  - STOMATITIS [None]
  - SUICIDAL IDEATION [None]
  - TINNITUS [None]
